FAERS Safety Report 7816620-8 (Version None)
Quarter: 2011Q4

REPORT INFORMATION
  Report Type: 
  Country: None (occurrence: None)
  Receive Date: 20111017
  Receipt Date: 20111011
  Transmission Date: 20120403
  Serious: Yes (Disabling, Other)
  Sender: FDA-Public Use
  Company Number: US-PFIZER INC-2011226119

PATIENT
  Sex: Male
  Weight: 87.1 kg

DRUGS (5)
  1. REBETOL [Suspect]
     Indication: HEPATITIS C
     Dosage: UNK
     Route: 048
     Dates: start: 20020215, end: 20030301
  2. PEG-INTRON [Suspect]
     Indication: HEPATITIS C
     Dosage: UNK
     Dates: start: 20020215, end: 20030301
  3. INTERFERON ALFA-2A [Concomitant]
     Dosage: UNK
  4. NEUMEGA [Suspect]
     Indication: PAIN
     Dosage: UNK
     Dates: start: 20021101, end: 20030228
  5. NEUMEGA [Suspect]
     Indication: ABDOMINAL PAIN UPPER
     Dosage: UNK
     Dates: start: 20020101, end: 20030228

REACTIONS (13)
  - BODY HEIGHT INCREASED [None]
  - MALAISE [None]
  - FEELING ABNORMAL [None]
  - PAIN [None]
  - INTERVERTEBRAL DISC PROTRUSION [None]
  - HYPOAESTHESIA [None]
  - PULSE ABSENT [None]
  - THYROID DISORDER [None]
  - WEIGHT INCREASED [None]
  - BURNING SENSATION [None]
  - MUSCLE SPASMS [None]
  - OVERDOSE [None]
  - WEIGHT DECREASED [None]
